FAERS Safety Report 20341186 (Version 1)
Quarter: 2022Q1

REPORT INFORMATION
  Report Type: Report from Study
  Country: US (occurrence: US)
  Receive Date: 20220117
  Receipt Date: 20220117
  Transmission Date: 20220423
  Serious: Yes (Other)
  Sender: FDA-Public Use
  Company Number: US-MYLANLABS-2022M1003520

PATIENT
  Sex: Female
  Weight: 145 kg

DRUGS (1)
  1. GLATIRAMER ACETATE [Suspect]
     Active Substance: GLATIRAMER ACETATE
     Indication: Multiple sclerosis
     Dosage: 40 MILLIGRAM

REACTIONS (3)
  - Multiple sclerosis relapse [Unknown]
  - Drug ineffective [Unknown]
  - Product dose omission issue [Unknown]
